FAERS Safety Report 10169919 (Version 3)
Quarter: 2018Q1

REPORT INFORMATION
  Report Type: Spontaneous
  Country: US (occurrence: US)
  Receive Date: 20140513
  Receipt Date: 20180117
  Transmission Date: 20180508
  Serious: Yes (Hospitalization, Other)
  Sender: FDA-Public Use
  Company Number: US-BAYER-2014-069061

PATIENT
  Age: 31 Year
  Sex: Female
  Weight: 81.63 kg

DRUGS (3)
  1. MIRENA [Suspect]
     Active Substance: LEVONORGESTREL
     Indication: MENORRHAGIA
     Dosage: 20 MCG/24HR, CONT
     Route: 015
     Dates: start: 20120201, end: 20120504
  2. IBUPROFEN [IBUPROFEN] [Concomitant]
     Active Substance: IBUPROFEN
     Dosage: UNK
     Dates: start: 20120109
  3. MIRENA [Suspect]
     Active Substance: LEVONORGESTREL
     Dosage: UNK

REACTIONS (16)
  - Pelvic pain [None]
  - Emotional distress [None]
  - Uterine perforation [None]
  - Abdominal pain [None]
  - Fear [None]
  - Ectopic pregnancy [None]
  - Medical device discomfort [None]
  - Depressed mood [None]
  - Vaginal haemorrhage [None]
  - Internal injury [None]
  - Tubal rupture [None]
  - Internal haemorrhage [None]
  - Depression [None]
  - Maternal exposure before pregnancy [None]
  - Genital haemorrhage [None]
  - Anxiety [None]

NARRATIVE: CASE EVENT DATE: 201204
